FAERS Safety Report 5558102-2 (Version None)
Quarter: 2007Q4

REPORT INFORMATION
  Report Type: 
  Country: None (occurrence: None)
  Receive Date: 20071214
  Receipt Date: 20071207
  Transmission Date: 20080405
  Serious: Yes (Other)
  Sender: FDA-Public Use
  Company Number: JP-BRISTOL-MYERS SQUIBB COMPANY-13965967

PATIENT
  Age: 32 Year
  Sex: Female

DRUGS (3)
  1. ARIPIPRAZOLE [Suspect]
     Indication: SCHIZOPHRENIA, CATATONIC TYPE
     Route: 048
     Dates: start: 20060801, end: 20070701
  2. RISPERIDONE [Concomitant]
     Indication: PREMEDICATION
  3. OLANZAPINE [Concomitant]
     Indication: PREMEDICATION

REACTIONS (2)
  - ABORTION MISSED [None]
  - PREGNANCY [None]
